FAERS Safety Report 16054020 (Version 3)
Quarter: 2019Q1

REPORT INFORMATION
  Report Type: Spontaneous
  Country: US (occurrence: US)
  Receive Date: 20190308
  Receipt Date: 20190325
  Transmission Date: 20190418
  Serious: Yes (Other)
  Sender: FDA-Public Use
  Company Number: US-SERVIER-S19002028

PATIENT

DRUGS (4)
  1. TN UNSPECIFIED [Concomitant]
     Active Substance: TROLNITRATE
     Dosage: 300 MG, ONE DOSE
     Route: 048
     Dates: start: 20190218, end: 20190218
  2. TN UNSPECIFIED [Concomitant]
     Active Substance: TROLNITRATE
     Indication: PREMEDICATION
     Dosage: 50 MG, ONE DOSE
     Route: 048
     Dates: start: 20190218, end: 20190218
  3. ONCASPAR [Suspect]
     Active Substance: PEGASPARGASE
     Dosage: 4800 IU, ONE DOSE
     Route: 042
     Dates: start: 20190218, end: 20190218
  4. ONCASPAR [Suspect]
     Active Substance: PEGASPARGASE
     Indication: ACUTE LYMPHOCYTIC LEUKAEMIA
     Dosage: UNK
     Route: 042

REACTIONS (1)
  - Pruritus [Recovered/Resolved]

NARRATIVE: CASE EVENT DATE: 20190218
